FAERS Safety Report 22765029 (Version 2)
Quarter: 2024Q1

REPORT INFORMATION
  Report Type: Other
  Country: US (occurrence: None)
  Receive Date: 20230731
  Receipt Date: 20240130
  Transmission Date: 20240409
  Serious: Yes (Other)
  Sender: FDA-Public Use
  Company Number: US-ROCHE-3393474

PATIENT
  Age: 51 Year
  Sex: Female
  Weight: 72.64 kg

DRUGS (4)
  1. OCREVUS [Suspect]
     Active Substance: OCRELIZUMAB
     Indication: Relapsing-remitting multiple sclerosis
     Dosage: EVERY 6 MONTHS DATE OF MOST RECENT INFUSION: 14/AUG/2023
     Route: 042
     Dates: start: 201706
  2. ALBUTEROL SULFATE [Concomitant]
     Active Substance: ALBUTEROL SULFATE
  3. BUSPIRONE [Concomitant]
     Active Substance: BUSPIRONE HYDROCHLORIDE
  4. VENTOLIN HFA [Concomitant]
     Active Substance: ALBUTEROL SULFATE

REACTIONS (8)
  - Menopause [Not Recovered/Not Resolved]
  - Progressive multiple sclerosis [Unknown]
  - Insomnia [Unknown]
  - Memory impairment [Unknown]
  - Depression [Not Recovered/Not Resolved]
  - Feeling hot [Unknown]
  - Vitamin B12 decreased [Not Recovered/Not Resolved]
  - Weight increased [Not Recovered/Not Resolved]

NARRATIVE: CASE EVENT DATE: 20221201
